FAERS Safety Report 6344831-X (Version None)
Quarter: 2009Q3

REPORT INFORMATION
  Report Type: 
  Country: None (occurrence: None)
  Receive Date: 20090904
  Receipt Date: 20090728
  Transmission Date: 20100115
  Serious: Yes (Life-Threatening, Hospitalization)
  Sender: FDA-Public Use
  Company Number: 2008-1788

PATIENT
  Age: 13 Year
  Sex: Male
  Weight: 34 kg

DRUGS (1)
  1. INCRELEX [Suspect]
     Dosage: 2.6 MG (1.3 MG, 2 IN 1 D), SUBCUTANEOUS
     Route: 058
     Dates: start: 20070428, end: 20070501

REACTIONS (3)
  - ANAPHYLACTIC REACTION [None]
  - INJECTION SITE ERYTHEMA [None]
  - PHARYNGEAL HYPOAESTHESIA [None]
